FAERS Safety Report 4750572-2 (Version None)
Quarter: 2005Q3

REPORT INFORMATION
  Report Type: 
  Country: None (occurrence: None)
  Receive Date: 20050818
  Receipt Date: 20050812
  Transmission Date: 20060218
  Serious: Yes (Hospitalization)
  Sender: FDA-Public Use
  Company Number: 805#1#2005-00054

PATIENT
  Age: 61 Year
  Sex: Male

DRUGS (4)
  1. ALPROSTADIL [Suspect]
     Indication: ATHEROSCLEROSIS OBLITERANS
     Dosage: 40 MCG (40 MCG 1 IN 1 DAY (S) ) INTRAVENOUS DRIP; 80 MCG (40 MCG 2 IN 1 DAY (S) ) INTRAVENOUS DRIP
     Route: 041
     Dates: start: 20050728, end: 20050806
  2. ALPROSTADIL [Suspect]
     Indication: ATHEROSCLEROSIS OBLITERANS
     Dosage: 40 MCG (40 MCG 1 IN 1 DAY (S) ) INTRAVENOUS DRIP; 80 MCG (40 MCG 2 IN 1 DAY (S) ) INTRAVENOUS DRIP
     Route: 041
     Dates: start: 20050807, end: 20050809
  3. CEFOZOPRAN-HYDROCHLORIDE (CEFOZOPRAN HYDROCHLORIDE) [Concomitant]
  4. CEFEPIME-DIHYDROCHLORIDE (CEFEPIME HYDROCHLORIDE) [Concomitant]

REACTIONS (5)
  - DYSPNOEA [None]
  - HYPOXIA [None]
  - OEDEMA PERIPHERAL [None]
  - PLEURAL EFFUSION [None]
  - SWELLING FACE [None]
